FAERS Safety Report 23762307 (Version 1)
Quarter: 2024Q2

REPORT INFORMATION
  Report Type: Spontaneous
  Country: US (occurrence: None)
  Receive Date: 20240418
  Receipt Date: 20240418
  Transmission Date: 20240716
  Serious: No
  Sender: FDA-Public Use
  Company Number: None

PATIENT
  Age: 60 Year
  Sex: Female
  Weight: 67.5 kg

DRUGS (1)
  1. ZAVZPRET [Suspect]
     Active Substance: ZAVEGEPANT HYDROCHLORIDE
     Indication: Migraine
     Dosage: 1 INHALATION RESPIRTORY (INHALATION)
     Route: 055
     Dates: start: 20240407, end: 20240407

REACTIONS (3)
  - Pain [None]
  - Headache [None]
  - Neck pain [None]

NARRATIVE: CASE EVENT DATE: 20240407
